FAERS Safety Report 8551878-1 (Version None)
Quarter: 2012Q3

REPORT INFORMATION
  Report Type: 
  Country: None (occurrence: None)
  Receive Date: 20120730
  Receipt Date: 20120725
  Transmission Date: 20120928
  Serious: Yes (Life-Threatening, Hospitalization)
  Sender: FDA-Public Use
  Company Number: US-GILEAD-2012-0055798

PATIENT
  Sex: Female

DRUGS (6)
  1. LETAIRIS [Suspect]
     Indication: HEREDITARY HAEMORRHAGIC TELANGIECTASIA
  2. LASIX [Concomitant]
     Indication: OEDEMA
     Dosage: UNK
     Dates: start: 20120525
  3. LANOXIN [Concomitant]
     Dosage: UNK
     Dates: start: 20110222
  4. ADVAIR DISKUS 100/50 [Concomitant]
     Indication: DYSPNOEA
     Dosage: UNK
     Dates: start: 20120424
  5. TIMOLOL MALEATE [Concomitant]
     Dosage: UNK
     Dates: start: 20111028
  6. LETAIRIS [Suspect]
     Indication: PULMONARY HYPERTENSION
     Dosage: 5 MG, UNK
     Route: 048
     Dates: start: 20120511, end: 20120529

REACTIONS (3)
  - BLOOD PRESSURE DECREASED [None]
  - TINNITUS [None]
  - HYPOTENSION [None]
